FAERS Safety Report 20255468 (Version 1)
Quarter: 2021Q4

REPORT INFORMATION
  Report Type: Spontaneous
  Country: US (occurrence: None)
  Receive Date: 20211229
  Receipt Date: 20211229
  Transmission Date: 20220303
  Serious: No
  Sender: FDA-Public Use
  Company Number: None

PATIENT
  Age: 36 Year
  Sex: Male
  Weight: 78.75 kg

DRUGS (1)
  1. .DELTA.8-TETRAHYDROCANNABINOL\HERBALS [Suspect]
     Active Substance: .DELTA.8-TETRAHYDROCANNABINOL\HERBALS
     Indication: Analgesic therapy
     Dosage: OTHER QUANTITY : 1 1 GUMMY;?
     Route: 048
     Dates: start: 20211226, end: 20211226

REACTIONS (6)
  - Illness [None]
  - Psychotic disorder [None]
  - Hallucination [None]
  - Chills [None]
  - Dry mouth [None]
  - Dysstasia [None]

NARRATIVE: CASE EVENT DATE: 20211226
